FAERS Safety Report 12870422 (Version 2)
Quarter: 2017Q1

REPORT INFORMATION
  Report Type: Spontaneous
  Country: US (occurrence: US)
  Receive Date: 20161021
  Receipt Date: 20170207
  Transmission Date: 20170428
  Serious: Yes (Death)
  Sender: FDA-Public Use
  Company Number: US-BAYER-2016-197896

PATIENT
  Age: 62 Year
  Sex: Female

DRUGS (45)
  1. KETOCONAZOLE. [Concomitant]
     Active Substance: KETOCONAZOLE
     Dosage: 2 DF, QD
     Route: 061
     Dates: start: 20140626
  2. LEVALBUTEROL HYDROCHLORIDE. [Concomitant]
     Active Substance: LEVALBUTEROL HYDROCHLORIDE
     Indication: WHEEZING
     Dosage: 1 DF, TID AS NEEDED
     Dates: start: 20121107
  3. PROMETHAZINE HYDROCHLORIDE. [Concomitant]
     Active Substance: PROMETHAZINE HYDROCHLORIDE
     Indication: NAUSEA
     Dosage: UNK
     Route: 048
     Dates: start: 20121102
  4. VITAMIN D [Concomitant]
     Active Substance: CHOLECALCIFEROL
  5. FLUTICASONE PROPIONATE. [Concomitant]
     Active Substance: FLUTICASONE PROPIONATE
  6. LIPITOR [Concomitant]
     Active Substance: ATORVASTATIN CALCIUM
  7. BOTOX [Concomitant]
     Active Substance: ONABOTULINUMTOXINA
     Dosage: INJECT AS NEEDED
     Dates: start: 20130826
  8. CLONAZEPAM. [Concomitant]
     Active Substance: CLONAZEPAM
     Dosage: 1-2 TABLETS AS NEEDED
  9. IBUPROFEN. [Concomitant]
     Active Substance: IBUPROFEN
     Dosage: 1 DF, TID, IF NEEDED
     Route: 048
     Dates: start: 20061106
  10. LIDOCAINE. [Concomitant]
     Active Substance: LIDOCAINE
     Dosage: 1 DF, QD
     Route: 061
     Dates: start: 20140606
  11. MUPIROCIN CALCIUM. [Concomitant]
     Active Substance: MUPIROCIN CALCIUM
     Dosage: APPLY AS DIRECTED
     Dates: start: 20131212
  12. VITAMIN C [Concomitant]
     Active Substance: ASCORBIC ACID
     Dosage: 1 DF, BID
     Route: 048
  13. PANTOPRAZOLE SODIUM. [Concomitant]
     Active Substance: PANTOPRAZOLE SODIUM
  14. METFORMIN HCL [Concomitant]
     Active Substance: METFORMIN HYDROCHLORIDE
  15. BACLOFEN. [Concomitant]
     Active Substance: BACLOFEN
     Dosage: 10 MG, QID
  16. PROZAC [Concomitant]
     Active Substance: FLUOXETINE HYDROCHLORIDE
     Dosage: 20 MG, QD
  17. CARDURA [Concomitant]
     Active Substance: DOXAZOSIN MESYLATE
  18. ALLEGRA [Concomitant]
     Active Substance: FEXOFENADINE HYDROCHLORIDE
     Dosage: 1 DF, AS NEEDED
     Dates: start: 20150327
  19. SENNA [Concomitant]
     Active Substance: SENNA LEAF\SENNOSIDES\SENNOSIDES A AND B
     Dosage: 2 DF, BID
     Dates: start: 20101112
  20. BETASERON [Suspect]
     Active Substance: INTERFERON BETA-1B
     Dosage: UNK
     Dates: start: 1995, end: 2001
  21. COPAXONE [Concomitant]
     Active Substance: GLATIRAMER ACETATE
     Dosage: UNK
     Dates: start: 20150204
  22. LACTULOSE. [Concomitant]
     Active Substance: LACTULOSE
     Indication: CONSTIPATION
     Dosage: 1-2 TEASPOON, BID
     Route: 048
     Dates: start: 20110506
  23. NITROFURANTOIN. [Concomitant]
     Active Substance: NITROFURANTOIN
     Indication: PROPHYLAXIS URINARY TRACT INFECTION
     Dosage: 1 DF, QD IF NEEDED
     Route: 048
     Dates: start: 20100130
  24. FISH OIL [Concomitant]
     Active Substance: FISH OIL
     Dosage: 1 DF, BID
  25. GABAPENTIN. [Concomitant]
     Active Substance: GABAPENTIN
     Dosage: 1 DF, QD, AT BETIME
     Route: 048
     Dates: start: 20070719
  26. ZINC SULFATE [Concomitant]
     Active Substance: ZINC SULFATE\ZINC SULFATE ANHYDROUS
  27. FLOVENT [Concomitant]
     Active Substance: FLUTICASONE PROPIONATE
     Dosage: 2 DF, BID
     Dates: start: 20140530
  28. KLOR-CON M10 [Concomitant]
     Active Substance: POTASSIUM CHLORIDE
     Dosage: 2 DF, QD EVERY MORNING WITH LASIX
     Route: 048
     Dates: start: 20120203
  29. PRAVASTATIN SODIUM. [Concomitant]
     Active Substance: PRAVASTATIN SODIUM
  30. BUPROPION HYDROCHLORIDE. [Concomitant]
     Active Substance: BUPROPION HYDROCHLORIDE
  31. FLUOXETINE HCL [Concomitant]
     Active Substance: FLUOXETINE HYDROCHLORIDE
  32. THEOPHYLLINE [Concomitant]
     Active Substance: THEOPHYLLINE ANHYDROUS
  33. CALTRATE +D [CALCIUM CARBONATE,VITAMIN D NOS] [Concomitant]
     Dosage: 1 DF, BID
  34. COLACE [Concomitant]
     Active Substance: DOCUSATE SODIUM
     Dosage: `1 DF, BID
     Dates: start: 20101112
  35. NITROSTAT [Concomitant]
     Active Substance: NITROGLYCERIN
     Indication: PAIN
     Dosage: UNK
     Route: 060
     Dates: start: 20121211
  36. NORCO [Concomitant]
     Active Substance: ACETAMINOPHEN\HYDROCODONE BITARTRATE
     Indication: PAIN
     Dosage: 1 DF, QID
     Dates: start: 20101112
  37. OMEGA 3 [FISH OIL] [Concomitant]
     Dosage: 1 DF, BID
     Route: 048
     Dates: start: 20140706
  38. QUETIAPINE FUMARATE. [Concomitant]
     Active Substance: QUETIAPINE FUMARATE
  39. DULCOLAX (BISACODYL) [Concomitant]
     Active Substance: BISACODYL
     Indication: CONSTIPATION
     Dosage: UNK
  40. TRIAMCINOLONE ACETONIDE. [Concomitant]
     Active Substance: TRIAMCINOLONE ACETONIDE
     Indication: DERMATITIS
     Dosage: UNK
     Dates: start: 20140424
  41. ORAL CONTRACEPTIVE NOS [Concomitant]
     Active Substance: UNSPECIFIED INGREDIENT
  42. DOXYCYCLIN [DOXYCYCLINE HYCLATE] [Concomitant]
     Dosage: 1 DF, BID
     Dates: start: 20160212
  43. FUROSEMIDE. [Concomitant]
     Active Substance: FUROSEMIDE
  44. NYSTATIN. [Concomitant]
     Active Substance: NYSTATIN
     Indication: BODY TINEA
     Dosage: 2 DF, UNK
     Dates: start: 20090812
  45. TEGRETOL [Concomitant]
     Active Substance: CARBAMAZEPINE
     Dosage: 200 MG, QD

REACTIONS (1)
  - Cardiopulmonary failure [Fatal]

NARRATIVE: CASE EVENT DATE: 20160229
